FAERS Safety Report 9256878 (Version 1)
Quarter: 2013Q2

REPORT INFORMATION
  Report Type: Spontaneous
  Country: US (occurrence: None)
  Receive Date: 20130423
  Receipt Date: 20130423
  Transmission Date: 20140414
  Serious: Yes (Hospitalization)
  Sender: FDA-Public Use
  Company Number: 2013AP004537

PATIENT
  Age: 21 Year
  Sex: Male

DRUGS (1)
  1. SILDENAFIL [Suspect]

REACTIONS (5)
  - Non-cardiogenic pulmonary oedema [None]
  - Pulmonary veno-occlusive disease [None]
  - Pleural effusion [None]
  - Condition aggravated [None]
  - Lung transplant [None]
